FAERS Safety Report 14073391 (Version 1)
Quarter: 2017Q4

REPORT INFORMATION
  Report Type: Spontaneous
  Country: PH (occurrence: PH)
  Receive Date: 20171011
  Receipt Date: 20171011
  Transmission Date: 20180321
  Serious: Yes (Other)
  Sender: FDA-Public Use
  Company Number: PH-009507513-1710PHL004602

PATIENT
  Sex: Female

DRUGS (2)
  1. NORIZEC [Suspect]
     Active Substance: GLIMEPIRIDE
     Dosage: UNK
  2. JANUVIA [Suspect]
     Active Substance: SITAGLIPTIN PHOSPHATE
     Dosage: UNK
     Route: 048

REACTIONS (2)
  - Visual impairment [Recovering/Resolving]
  - Retinal vascular thrombosis [Recovering/Resolving]
